FAERS Safety Report 5265078-4 (Version None)
Quarter: 2007Q1

REPORT INFORMATION
  Report Type: 
  Country: None (occurrence: None)
  Receive Date: 20061121
  Receipt Date: 20060807
  Transmission Date: 20070707
  Serious: No
  Sender: FDA-Public Use
  Company Number: TPA2006A01287

PATIENT
  Age: 76 Year
  Sex: Female
  Weight: 60.3284 kg

DRUGS (2)
  1. ROZEREM [Suspect]
     Indication: INITIAL INSOMNIA
     Dosage: 8 MG, HS, PER ORAL
     Route: 048
     Dates: start: 20060802, end: 20060803
  2. ESTRADIOL [Concomitant]

REACTIONS (5)
  - DRY MOUTH [None]
  - FEELING ABNORMAL [None]
  - MIDDLE INSOMNIA [None]
  - PARAESTHESIA [None]
  - SENSATION OF HEAVINESS [None]
